FAERS Safety Report 10162510 (Version 1)
Quarter: 2014Q2

REPORT INFORMATION
  Report Type: Spontaneous
  Country: IN (occurrence: None)
  Receive Date: 20140507
  Receipt Date: 20140507
  Transmission Date: 20141212
  Serious: Yes (Other)
  Sender: FDA-Public Use
  Company Number: AUR-APL-2014-05385

PATIENT
  Age: 38 Year
  Sex: Female

DRUGS (3)
  1. SERTRALINE (SERTRALINE) [Suspect]
     Indication: DEPRESSION
  2. TOPIRAMATE (TOPIRAMATE) [Concomitant]
  3. RISPERIDONE (RISPERIDONE) [Concomitant]

REACTIONS (2)
  - Emotional distress [None]
  - Dermatitis acneiform [None]
